FAERS Safety Report 4474183-1 (Version None)
Quarter: 2004Q4

REPORT INFORMATION
  Report Type: 
  Country: None (occurrence: None)
  Receive Date: 20041013
  Receipt Date: 20041013
  Transmission Date: 20050328
  Serious: No
  Sender: FDA-Public Use
  Company Number: None

PATIENT
  Sex: Female
  Weight: 112.9457 kg

DRUGS (3)
  1. VIOXX [Suspect]
     Indication: FIBROMYALGIA
     Dosage: 50 MG ONCE DAILY ORAL
     Route: 048
     Dates: start: 20000701, end: 20041007
  2. VIOXX [Suspect]
     Indication: OSTEOARTHRITIS
     Dosage: 50 MG ONCE DAILY ORAL
     Route: 048
     Dates: start: 20000701, end: 20041007
  3. BEXTRA [Concomitant]

REACTIONS (6)
  - ATRIAL FLUTTER [None]
  - DYSPNOEA [None]
  - FLUID RETENTION [None]
  - JOINT SWELLING [None]
  - PAIN IN JAW [None]
  - TACHYCARDIA [None]
